FAERS Safety Report 13901458 (Version 1)
Quarter: 2017Q3

REPORT INFORMATION
  Report Type: Spontaneous
  Country: US (occurrence: US)
  Receive Date: 20170824
  Receipt Date: 20170824
  Transmission Date: 20171127
  Serious: Yes (Other)
  Sender: FDA-Public Use
  Company Number: US-SA-2017SA155617

PATIENT
  Age: 45 Year
  Sex: Female

DRUGS (2)
  1. SOLOSTAR [Suspect]
     Active Substance: DEVICE
     Indication: TYPE 2 DIABETES MELLITUS
     Dates: start: 201605
  2. LANTUS SOLOSTAR [Suspect]
     Active Substance: INSULIN GLARGINE
     Indication: TYPE 2 DIABETES MELLITUS
     Dosage: DOSE: 20 UNITS AM AND 60 UNITS PM
     Route: 051
     Dates: start: 201605

REACTIONS (4)
  - Cardiac disorder [Unknown]
  - Visual impairment [Unknown]
  - Product use issue [Unknown]
  - Product storage error [Unknown]

NARRATIVE: CASE EVENT DATE: 201606
